FAERS Safety Report 5254914-3 (Version None)
Quarter: 2007Q1

REPORT INFORMATION
  Report Type: 
  Country: None (occurrence: None)
  Receive Date: 20070305
  Receipt Date: 20070223
  Transmission Date: 20070707
  Serious: No
  Sender: FDA-Public Use
  Company Number: US-BAXTER-2007BH002416

PATIENT
  Sex: Male

DRUGS (1)
  1. DIANEAL [Suspect]
     Indication: PERITONEAL DIALYSIS
     Route: 033

REACTIONS (4)
  - CATHETER RELATED COMPLICATION [None]
  - DISCOMFORT [None]
  - PROCEDURAL COMPLICATION [None]
  - SWELLING [None]
